FAERS Safety Report 8159964-5 (Version None)
Quarter: 2012Q1

REPORT INFORMATION
  Report Type: 
  Country: None (occurrence: None)
  Receive Date: 20120223
  Receipt Date: 20120216
  Transmission Date: 20120608
  Serious: Yes (Hospitalization)
  Sender: FDA-Public Use
  Company Number: US-GLAXOSMITHKLINE-A0847367A

PATIENT
  Age: 45 Year
  Sex: Female
  Weight: 128.2 kg

DRUGS (13)
  1. SYNTHROID [Concomitant]
  2. POTASSIUM CHLORIDE [Concomitant]
  3. BENTYL [Concomitant]
  4. LANTUS [Concomitant]
  5. TOPROL-XL [Concomitant]
  6. AVANDIA [Suspect]
     Indication: TYPE 2 DIABETES MELLITUS
     Route: 048
  7. AVANDAMET [Suspect]
     Indication: DIABETES MELLITUS
     Route: 048
  8. LITHOBID [Concomitant]
  9. XANAX [Concomitant]
  10. UNSPECIFIED MEDICATION [Concomitant]
  11. ESTRADIOL [Concomitant]
  12. JANUVIA [Concomitant]
  13. FUROSEMIDE [Concomitant]

REACTIONS (2)
  - CEREBRAL INFARCTION [None]
  - CEREBROVASCULAR ACCIDENT [None]
